FAERS Safety Report 5190300-2 (Version None)
Quarter: 2006Q4

REPORT INFORMATION
  Report Type: 
  Country: None (occurrence: None)
  Receive Date: 20061222
  Receipt Date: 20061027
  Transmission Date: 20070319
  Serious: Yes (Hospitalization)
  Sender: FDA-Public Use
  Company Number: JP-AVENTIS-200613377JP

PATIENT
  Age: 74 Year
  Sex: Female
  Weight: 56 kg

DRUGS (7)
  1. TAXOTERE [Suspect]
     Indication: OVARIAN CANCER
     Dosage: DOSE: 40 MG PER 2 WEEKS WITH A WEEK REST
     Route: 041
     Dates: start: 20060904, end: 20061003
  2. CAMPTO                             /01280202/ [Concomitant]
     Indication: OVARIAN CANCER
     Dosage: DOSE: 80 MG PER 2 WEEKS WITH A WEEK REST
     Route: 041
     Dates: start: 20060904, end: 20061003
  3. PACLITAXEL [Concomitant]
     Indication: OVARIAN CANCER
     Dates: start: 20051213, end: 20060714
  4. PARAPLATIN [Concomitant]
     Indication: OVARIAN CANCER
     Dates: start: 20051213, end: 20060714
  5. DECADRON [Concomitant]
     Indication: PREMEDICATION
     Dosage: DOSE: 8 MG PER 2 WEEKS WITH A WEEK REST
     Dates: start: 20060904, end: 20061003
  6. SEROTONE [Concomitant]
     Indication: PREMEDICATION
     Dosage: DOSE: 10 MG PER 2 WEEKS WITH A WEEK REST
     Dates: start: 20060904, end: 20061003
  7. GASTER [Concomitant]
     Indication: PREMEDICATION
     Dosage: DOSE: 20 MG PER 2 WEEKS WITH A WEEK REST
     Dates: start: 20060904, end: 20061003

REACTIONS (1)
  - PANCREATITIS ACUTE [None]
